FAERS Safety Report 8076622-6 (Version None)
Quarter: 2012Q1

REPORT INFORMATION
  Report Type: 
  Country: None (occurrence: None)
  Receive Date: 20120127
  Receipt Date: 20120118
  Transmission Date: 20120608
  Serious: Yes (Life-Threatening, Hospitalization)
  Sender: FDA-Public Use
  Company Number: GB-JNJFOC-20120107423

PATIENT
  Age: 68 Year
  Sex: Female
  Weight: 89 kg

DRUGS (11)
  1. OXYCONTIN [Concomitant]
  2. XARELTO [Suspect]
     Route: 048
     Dates: start: 20120107, end: 20120109
  3. IBUPROFEN [Concomitant]
  4. XARELTO [Suspect]
     Indication: THROMBOSIS PROPHYLAXIS
     Route: 048
  5. LANSOPRAZOLE [Concomitant]
  6. ADALAT CC [Concomitant]
  7. XARELTO [Suspect]
     Indication: KNEE ARTHROPLASTY
     Route: 048
  8. ACETAMINOPHEN [Concomitant]
  9. XARELTO [Suspect]
     Route: 048
     Dates: start: 20120107, end: 20120109
  10. BISOPROLOL FUMARATE [Concomitant]
  11. BENDROFLUMETHIAZIDE [Concomitant]

REACTIONS (1)
  - PULMONARY EMBOLISM [None]
